FAERS Safety Report 7209053-9 (Version None)
Quarter: 2010Q4

REPORT INFORMATION
  Report Type: 
  Country: None (occurrence: None)
  Receive Date: 20101222
  Receipt Date: 20101209
  Transmission Date: 20110411
  Serious: Yes (Other)
  Sender: FDA-Public Use
  Company Number: 779880

PATIENT
  Age: 19 Year
  Sex: Female

DRUGS (1)
  1. CYTARABINE [Suspect]
     Indication: PRODUCT USED FOR UNKNOWN INDICATION
     Dates: start: 20100101, end: 20100101

REACTIONS (6)
  - BLOOD DISORDER [None]
  - CAECITIS [None]
  - ESCHERICHIA INFECTION [None]
  - INTESTINAL PERFORATION [None]
  - RECTAL HAEMORRHAGE [None]
  - VAGINAL HAEMORRHAGE [None]
